FAERS Safety Report 5192813-6 (Version None)
Quarter: 2006Q4

REPORT INFORMATION
  Report Type: 
  Country: None (occurrence: None)
  Receive Date: 20061228
  Receipt Date: 20051108
  Transmission Date: 20070319
  Serious: No
  Sender: FDA-Public Use
  Company Number: US-GLAXOSMITHKLINE-A0581466A

PATIENT
  Age: 65 Year
  Sex: Female

DRUGS (7)
  1. FLONASE [Suspect]
     Dosage: 2SPR TWICE PER DAY
     Route: 045
     Dates: start: 19990101, end: 20050801
  2. SYNTHROID [Concomitant]
  3. FOSAMAX [Concomitant]
  4. NEXIUM [Concomitant]
  5. INDERAL [Concomitant]
  6. PRAVACHOL [Concomitant]
  7. NORVASC [Concomitant]

REACTIONS (1)
  - DRUG INEFFECTIVE [None]
